FAERS Safety Report 7631137-1 (Version None)
Quarter: 2011Q3

REPORT INFORMATION
  Report Type: 
  Country: None (occurrence: None)
  Receive Date: 20110725
  Receipt Date: 20110718
  Transmission Date: 20111222
  Serious: No
  Sender: FDA-Public Use
  Company Number: US-JNJFOC-20110707356

PATIENT
  Sex: Male

DRUGS (2)
  1. VICODIN [Concomitant]
     Indication: BREAKTHROUGH PAIN
     Route: 065
     Dates: start: 20100301
  2. DURAGESIC-100 [Suspect]
     Indication: BACK PAIN
     Route: 062
     Dates: start: 20100301

REACTIONS (3)
  - SKIN REACTION [None]
  - WRONG TECHNIQUE IN DRUG USAGE PROCESS [None]
  - PRODUCT QUALITY ISSUE [None]
